FAERS Safety Report 10039675 (Version 4)
Quarter: 2015Q1

REPORT INFORMATION
  Report Type: Spontaneous
  Country: VE (occurrence: VE)
  Receive Date: 20140326
  Receipt Date: 20150224
  Transmission Date: 20150720
  Serious: Yes (Death, Hospitalization, Other)
  Sender: FDA-Public Use
  Company Number: VE-ABBVIE-14P-178-1215878-00

PATIENT
  Age: 60 Year
  Sex: Female

DRUGS (2)
  1. METHOTREXATE [Concomitant]
     Active Substance: METHOTREXATE
     Indication: RHEUMATOID ARTHRITIS
     Dosage: 2.5 MG DAILY, 4 DAYS A WEEK
     Route: 048
     Dates: start: 200801, end: 201402
  2. HUMIRA [Suspect]
     Active Substance: ADALIMUMAB
     Indication: RHEUMATOID ARTHRITIS
     Route: 058
     Dates: start: 200801, end: 201402

REACTIONS (5)
  - Fall [Fatal]
  - Hip fracture [Fatal]
  - Hip fracture [Fatal]
  - Gastritis haemorrhagic [Fatal]
  - Femur fracture [Fatal]

NARRATIVE: CASE EVENT DATE: 201310
